FAERS Safety Report 9454522 (Version 1)
Quarter: 2013Q3

REPORT INFORMATION
  Report Type: Spontaneous
  Country: JP (occurrence: JP)
  Receive Date: 20130812
  Receipt Date: 20130812
  Transmission Date: 20140515
  Serious: Yes (Hospitalization)
  Sender: FDA-Public Use
  Company Number: JP-GLAXOSMITHKLINE-B0901386A

PATIENT
  Age: 33 Year
  Sex: Male

DRUGS (1)
  1. LAMICTAL [Suspect]
     Indication: EPILEPSY
     Route: 048
     Dates: start: 201207

REACTIONS (7)
  - Pulmonary alveolar haemorrhage [Recovered/Resolved]
  - Dyspnoea [Recovered/Resolved]
  - Haemoptysis [Recovered/Resolved]
  - Cough [Unknown]
  - Amnesia [Unknown]
  - PO2 decreased [Unknown]
  - Computerised tomogram thorax abnormal [Unknown]
